FAERS Safety Report 4338995-7 (Version None)
Quarter: 2004Q2

REPORT INFORMATION
  Report Type: 
  Country: None (occurrence: None)
  Receive Date: 20040409
  Receipt Date: 20040401
  Transmission Date: 20050107
  Serious: Yes (Hospitalization)
  Sender: FDA-Public Use
  Company Number: UKP04000135

PATIENT
  Age: 80 Year
  Sex: Male

DRUGS (3)
  1. DIDRONEL [Suspect]
     Indication: OSTEOPOROSIS
     Dosage: 1 UNK, DAILY, ORAL
     Route: 048
     Dates: start: 20000101, end: 20040226
  2. ACETYLSALICYLIC ACID (ACETYL SALICYLIC ACID (ACETYLSALICYLIC ACID) [Suspect]
     Dosage: 75 MG, DAILY, ORAL
     Route: 048
     Dates: start: 20000101, end: 20040226
  3. CO-CODAMOL (CODEINE PHOSPHATE) [Concomitant]

REACTIONS (4)
  - ABDOMINAL PAIN [None]
  - OESOPHAGEAL HAEMORRHAGE [None]
  - OESOPHAGITIS [None]
  - VOMITING [None]
